FAERS Safety Report 25511202 (Version 1)
Quarter: 2025Q3

REPORT INFORMATION
  Report Type: Spontaneous
  Country: US (occurrence: None)
  Receive Date: 20250703
  Receipt Date: 20250703
  Transmission Date: 20251020
  Serious: No
  Sender: INCYTE
  Company Number: US-INCYTE CORPORATION-2025IN006883

PATIENT
  Age: 61 Year

DRUGS (1)
  1. JAKAFI [Suspect]
     Active Substance: RUXOLITINIB
     Indication: Product used for unknown indication
     Dosage: 15 MILLIGRAM, BID

REACTIONS (12)
  - Yellow skin [Unknown]
  - Ocular icterus [Unknown]
  - Chromaturia [Unknown]
  - Pruritus [Unknown]
  - Skin exfoliation [Unknown]
  - Visual impairment [Unknown]
  - Memory impairment [Unknown]
  - Amnesia [Unknown]
  - Depression [Unknown]
  - Fatigue [Unknown]
  - Constipation [Unknown]
  - Weight increased [Unknown]
